FAERS Safety Report 21951712 (Version 1)
Quarter: 2023Q1

REPORT INFORMATION
  Report Type: Spontaneous
  Country: US (occurrence: None)
  Receive Date: 20230203
  Receipt Date: 20230203
  Transmission Date: 20230418
  Serious: No
  Sender: FDA-Public Use
  Company Number: None

PATIENT
  Age: 66 Year
  Sex: Female
  Weight: 92.4 kg

DRUGS (1)
  1. TECVAYLI [Suspect]
     Active Substance: TECLISTAMAB-CQYV
     Indication: Plasma cell myeloma
     Dosage: 5.7 MG SUBCUTANEOUS
     Route: 058
     Dates: start: 20230126

REACTIONS (3)
  - Immune effector cell-associated neurotoxicity syndrome [None]
  - Pyrexia [None]
  - Encephalopathy [None]

NARRATIVE: CASE EVENT DATE: 20230130
